FAERS Safety Report 19363080 (Version 8)
Quarter: 2022Q1

REPORT INFORMATION
  Report Type: Other
  Country: CA (occurrence: CA)
  Receive Date: 20210603
  Receipt Date: 20220202
  Transmission Date: 20220423
  Serious: Yes (Life-Threatening, Hospitalization)
  Sender: FDA-Public Use
  Company Number: CA-ROCHE-2838543

PATIENT
  Age: 41 Year
  Sex: Female
  Weight: 79.9 kg

DRUGS (16)
  1. XOLAIR [Suspect]
     Active Substance: OMALIZUMAB
     Indication: Chronic spontaneous urticaria
     Route: 058
     Dates: start: 20201110
  2. XOLAIR [Suspect]
     Active Substance: OMALIZUMAB
     Dosage: 150 MG INTO 2
     Route: 058
     Dates: start: 20201118
  3. XOLAIR [Suspect]
     Active Substance: OMALIZUMAB
     Route: 058
     Dates: start: 20210604
  4. XOLAIR [Suspect]
     Active Substance: OMALIZUMAB
     Route: 058
     Dates: start: 20210716
  5. AMLODIPINE [Concomitant]
     Active Substance: AMLODIPINE BESYLATE
     Indication: Product used for unknown indication
     Dosage: 10 MG (FREQUENCY 1)
     Route: 065
     Dates: start: 20210115
  6. RUPATADINE FUMARATE [Concomitant]
     Active Substance: RUPATADINE FUMARATE
     Indication: Product used for unknown indication
     Dosage: 1 DF, QD
     Route: 048
     Dates: start: 20200311
  7. CYCLOBENZAPRINE [Concomitant]
     Active Substance: CYCLOBENZAPRINE
     Indication: Product used for unknown indication
     Dosage: 10 MG (FREQUENCY 3)
     Route: 065
  8. CETIRIZINE HYDROCHLORIDE [Concomitant]
     Active Substance: CETIRIZINE HYDROCHLORIDE
     Indication: Product used for unknown indication
     Dosage: 20 MG (FREQUENCY 2)
     Route: 065
  9. GABAPENTIN [Concomitant]
     Active Substance: GABAPENTIN
     Indication: Product used for unknown indication
     Dosage: 300 MG (FREQUENCY 4)
     Route: 065
  10. FUROSEMIDE [Concomitant]
     Active Substance: FUROSEMIDE
     Indication: Product used for unknown indication
     Dosage: 40 MG (FREQUENCY 1)
     Route: 065
  11. KETOTIFEN [Concomitant]
     Active Substance: KETOTIFEN
     Indication: Product used for unknown indication
     Dosage: 1 MG (FREQUENCY 2)
     Route: 065
  12. VENTOLIN [Concomitant]
     Active Substance: ALBUTEROL SULFATE
     Indication: Product used for unknown indication
     Dosage: UNK
     Route: 065
  13. BILASTINE [Concomitant]
     Active Substance: BILASTINE
     Indication: Product used for unknown indication
     Dosage: 1 DF, QD
     Route: 048
     Dates: start: 20200311
  14. SINGULAIR [Concomitant]
     Active Substance: MONTELUKAST SODIUM
     Indication: Product used for unknown indication
     Dosage: 10 MG (FREQUENCY 1)
     Route: 065
  15. BENADRYL [Concomitant]
     Active Substance: DIPHENHYDRAMINE HYDROCHLORIDE
     Indication: Product used for unknown indication
     Dosage: 1 DF, BID
     Route: 048
     Dates: start: 20200311
  16. BENADRYL [Concomitant]
     Active Substance: DIPHENHYDRAMINE HYDROCHLORIDE
     Dosage: UNK
     Route: 042

REACTIONS (8)
  - Anaphylactic reaction [Unknown]
  - Road traffic accident [Unknown]
  - Back injury [Unknown]
  - Chest injury [Unknown]
  - Injury [Unknown]
  - Chronic spontaneous urticaria [Unknown]
  - Hypersensitivity [Unknown]
  - Product dose omission issue [Unknown]

NARRATIVE: CASE EVENT DATE: 20210115
